FAERS Safety Report 24803074 (Version 4)
Quarter: 2025Q1

REPORT INFORMATION
  Report Type: Report from Study
  Country: IN (occurrence: IN)
  Receive Date: 20250103
  Receipt Date: 20250328
  Transmission Date: 20250408
  Serious: Yes (Death, Hospitalization)
  Sender: ASTELLAS
  Company Number: IN-ASTELLAS-2025-AER-000088

PATIENT
  Age: 40 Year
  Sex: Female

DRUGS (3)
  1. XOSPATA [Suspect]
     Active Substance: GILTERITINIB
     Indication: Acute myeloid leukaemia
     Route: 048
     Dates: start: 20241017, end: 20241215
  2. XOSPATA [Suspect]
     Active Substance: GILTERITINIB
     Route: 048
     Dates: start: 20241225, end: 20250309
  3. VENETOCLAX [Concomitant]
     Active Substance: VENETOCLAX
     Indication: Acute myeloid leukaemia
     Route: 065
     Dates: end: 20250309

REACTIONS (10)
  - Blood potassium decreased [Fatal]
  - Blood calcium decreased [Fatal]
  - Blood magnesium decreased [Fatal]
  - Nerve injury [Fatal]
  - Swelling [Fatal]
  - Hypotension [Recovered/Resolved]
  - Blast cell count increased [Recovered/Resolved]
  - Infection [Recovered/Resolved]
  - Arthralgia [Not Recovered/Not Resolved]
  - Asthenia [Not Recovered/Not Resolved]

NARRATIVE: CASE EVENT DATE: 20241215
